FAERS Safety Report 7779941-3 (Version None)
Quarter: 2011Q3

REPORT INFORMATION
  Report Type: 
  Country: None (occurrence: None)
  Receive Date: 20110927
  Receipt Date: 20110923
  Transmission Date: 20111222
  Serious: Yes (Death, Hospitalization)
  Sender: FDA-Public Use
  Company Number: CA-BRISTOL-MYERS SQUIBB COMPANY-16050379

PATIENT
  Age: 68 Year
  Sex: Female

DRUGS (8)
  1. IPILIMUMAB [Suspect]
     Indication: MALIGNANT MELANOMA
     Route: 042
     Dates: start: 20110608, end: 20110810
  2. TYLENOL-500 [Concomitant]
     Dates: start: 20090101
  3. LIPITOR [Concomitant]
     Dates: start: 20050101
  4. INDAPAMIDE [Concomitant]
     Dates: start: 20050101
  5. CETAPHIL [Concomitant]
     Dates: start: 20110707
  6. FOSAMAX [Concomitant]
  7. ATIVAN [Concomitant]
     Dates: start: 20110201
  8. VITALUX [Concomitant]
     Dates: start: 20070101

REACTIONS (1)
  - TUMOUR HAEMORRHAGE [None]
